FAERS Safety Report 5983781-5 (Version None)
Quarter: 2008Q4

REPORT INFORMATION
  Report Type: 
  Country: None (occurrence: None)
  Receive Date: 20081208
  Receipt Date: 20081126
  Transmission Date: 20090506
  Serious: Yes (Hospitalization)
  Sender: FDA-Public Use
  Company Number: FR-WYE-H07018408

PATIENT
  Sex: Male

DRUGS (9)
  1. CORDARONE [Suspect]
     Indication: ARRHYTHMIA
     Route: 048
     Dates: start: 20060801, end: 20080229
  2. ACETYLSALICYLIC ACID SRT [Suspect]
     Dosage: UNSPECIFIED
     Route: 048
     Dates: start: 20070101, end: 20080229
  3. NEBIVOLOL [Suspect]
     Indication: HYPERTENSION
     Dosage: UNSPECIFIED
     Route: 048
     Dates: end: 20080229
  4. ART 50 [Concomitant]
     Dosage: UNSPECIFIED
     Route: 048
     Dates: end: 20080101
  5. PLAVIX [Concomitant]
     Dosage: UNSPECIFIED
     Dates: end: 20080101
  6. EZETROL [Concomitant]
     Dosage: UNSPECIFIED
     Route: 048
     Dates: start: 20071001, end: 20080101
  7. TAMSULOSIN HCL [Concomitant]
     Dosage: UNSPECIFIED
     Route: 048
     Dates: end: 20080101
  8. PRAVASTATIN [Suspect]
     Dosage: UNSPECIFIED
     Route: 048
     Dates: start: 20070101, end: 20080229
  9. MICARDIS HCT [Concomitant]
     Dosage: UNSPECIFIED
     Route: 048
     Dates: end: 20080101

REACTIONS (2)
  - ACUTE RESPIRATORY DISTRESS SYNDROME [None]
  - EOSINOPHILIC PNEUMONIA [None]
